FAERS Safety Report 10461181 (Version 1)
Quarter: 2014Q3

REPORT INFORMATION
  Report Type: Spontaneous
  Country: US (occurrence: US)
  Receive Date: 20140918
  Receipt Date: 20140918
  Transmission Date: 20150326
  Serious: No
  Sender: FDA-Public Use
  Company Number: US-PFIZER INC-2014255289

PATIENT
  Sex: Female

DRUGS (2)
  1. ADVIL [Suspect]
     Active Substance: IBUPROFEN
     Indication: NECK PAIN
     Dosage: 11 X 200MG CAPSULES IN 17 HOURS, IN THREE DOSES
  2. ADVIL [Suspect]
     Active Substance: IBUPROFEN
     Indication: MUSCULOSKELETAL PAIN

REACTIONS (5)
  - Intentional overdose [Unknown]
  - Joint swelling [Unknown]
  - Vomiting [Unknown]
  - Rash [Unknown]
  - Urticaria [Unknown]
